FAERS Safety Report 20323599 (Version 4)
Quarter: 2022Q4

REPORT INFORMATION
  Report Type: Spontaneous
  Country: DE (occurrence: DE)
  Receive Date: 20220111
  Receipt Date: 20221003
  Transmission Date: 20230112
  Serious: Yes (Death, Other)
  Sender: FDA-Public Use
  Company Number: DE-AMGEN-DEUSP2022002138

PATIENT

DRUGS (1)
  1. BLINATUMOMAB [Suspect]
     Active Substance: BLINATUMOMAB
     Indication: B precursor type acute leukaemia
     Dosage: UNK
     Route: 065

REACTIONS (10)
  - Diplopia [Recovered/Resolved]
  - Death [Fatal]
  - Cerebral haemorrhage [Fatal]
  - Venoocclusive liver disease [Fatal]
  - Multiple organ dysfunction syndrome [Fatal]
  - Acute lymphocytic leukaemia [Fatal]
  - Leukaemic infiltration extramedullary [Fatal]
  - Central nervous system leukaemia [Fatal]
  - Acute lymphocytic leukaemia recurrent [Recovered/Resolved]
  - Sepsis [Fatal]
